FAERS Safety Report 11649601 (Version 2)
Quarter: 2015Q4

REPORT INFORMATION
  Report Type: Spontaneous
  Country: US (occurrence: US)
  Receive Date: 20151021
  Receipt Date: 20151109
  Transmission Date: 20160304
  Serious: Yes (Other)
  Sender: FDA-Public Use
  Company Number: US-LPDUSPRD-20150822

PATIENT
  Age: 56 Year
  Sex: Female

DRUGS (1)
  1. ESMOLOL HYDROCHLORIDE INJECTION (0517-1810-10) [Suspect]
     Active Substance: ESMOLOL HYDROCHLORIDE
     Dosage: DOSE NOT STATED
     Route: 041

REACTIONS (6)
  - Injection site erythema [Unknown]
  - Injection site pain [Unknown]
  - Injection site vesicles [Unknown]
  - Injection site necrosis [Unknown]
  - Ulcer [Unknown]
  - Extravasation [Unknown]
